FAERS Safety Report 6030559-2 (Version None)
Quarter: 2009Q1

REPORT INFORMATION
  Report Type: 
  Country: None (occurrence: None)
  Receive Date: 20090105
  Receipt Date: 20090105
  Transmission Date: 20090719
  Serious: Yes (Other)
  Sender: FDA-Public Use
  Company Number: None

PATIENT
  Age: 27 Year
  Sex: Male
  Weight: 84.369 kg

DRUGS (1)
  1. GABAPENTIN [Suspect]
     Indication: NERVE INJURY
     Dosage: 600 MG X 2 DAILY PO
     Route: 048
     Dates: start: 20081020, end: 20081020

REACTIONS (1)
  - DYSURIA [None]
